FAERS Safety Report 4709051-0 (Version None)
Quarter: 2005Q3

REPORT INFORMATION
  Report Type: 
  Country: None (occurrence: None)
  Receive Date: 20050707
  Receipt Date: 20050628
  Transmission Date: 20060218
  Serious: Yes (Other)
  Sender: FDA-Public Use
  Company Number: 2005AP000540

PATIENT
  Age: 24 Year

DRUGS (3)
  1. PAROXETINE HYDROCHLORIDE (PAROXETINE HYDROCHLORIDE) (60 MG) [Suspect]
     Indication: DEPRESSION
     Dosage: 60 MG; PM
     Dates: start: 20030201
  2. OLANZAPINE [Concomitant]
  3. SERTRALINE [Concomitant]

REACTIONS (10)
  - DEPRESSION [None]
  - FEELING ABNORMAL [None]
  - HALLUCINATION, VISUAL [None]
  - HYPNAGOGIC HALLUCINATION [None]
  - INSOMNIA [None]
  - MOOD ALTERED [None]
  - NARCOLEPSY [None]
  - SLEEP PARALYSIS [None]
  - SOMNOLENCE [None]
  - SUICIDE ATTEMPT [None]
